FAERS Safety Report 17304752 (Version 1)
Quarter: 2020Q1

REPORT INFORMATION
  Report Type: Spontaneous
  Country: CA (occurrence: CA)
  Receive Date: 20200122
  Receipt Date: 20200122
  Transmission Date: 20200409
  Serious: Yes (Other)
  Sender: FDA-Public Use
  Company Number: CA-ALLERGAN-2002372US

PATIENT

DRUGS (12)
  1. MESALAZINE UNK [Suspect]
     Active Substance: MESALAMINE
     Indication: PRODUCT USED FOR UNKNOWN INDICATION
     Dosage: 500 MG, BID
     Route: 065
  2. VITAMIN D [Concomitant]
     Active Substance: VITAMIN D NOS
     Indication: PRODUCT USED FOR UNKNOWN INDICATION
  3. FORMOTEROL [Concomitant]
     Active Substance: FORMOTEROL
     Indication: PRODUCT USED FOR UNKNOWN INDICATION
  4. RISEDRONATE [Concomitant]
     Active Substance: RISEDRONATE SODIUM
     Indication: PRODUCT USED FOR UNKNOWN INDICATION
  5. ATORVASTATIN CALCIUM. [Concomitant]
     Active Substance: ATORVASTATIN CALCIUM
     Indication: PRODUCT USED FOR UNKNOWN INDICATION
  6. PREDNISONE. [Concomitant]
     Active Substance: PREDNISONE
     Indication: PRODUCT USED FOR UNKNOWN INDICATION
  7. DICLOFENAC [Concomitant]
     Active Substance: DICLOFENAC
     Indication: PRODUCT USED FOR UNKNOWN INDICATION
  8. HYOSCINE [Concomitant]
     Active Substance: SCOPOLAMINE
     Indication: PRODUCT USED FOR UNKNOWN INDICATION
  9. INFLIXIMAB [Suspect]
     Active Substance: INFLIXIMAB
     Indication: COLITIS ULCERATIVE
     Dosage: 300 MG
     Route: 042
  10. ACETAMINOPHEN. [Concomitant]
     Active Substance: ACETAMINOPHEN
     Indication: PRODUCT USED FOR UNKNOWN INDICATION
  11. PANTOPRAZOLE [Concomitant]
     Active Substance: PANTOPRAZOLE
     Indication: PRODUCT USED FOR UNKNOWN INDICATION
  12. MOMETASONE FUROATE. [Concomitant]
     Active Substance: MOMETASONE FUROATE
     Indication: PRODUCT USED FOR UNKNOWN INDICATION

REACTIONS (8)
  - Dizziness [Recovered/Resolved]
  - Product use issue [Unknown]
  - Blood pressure diastolic increased [Recovered/Resolved]
  - General physical health deterioration [Recovered/Resolved]
  - Colitis ulcerative [Recovered/Resolved]
  - Chest discomfort [Recovered/Resolved]
  - Haematochezia [Recovered/Resolved]
  - Head discomfort [Recovered/Resolved]
